FAERS Safety Report 17568489 (Version 1)
Quarter: 2020Q1

REPORT INFORMATION
  Report Type: Spontaneous
  Country: FR (occurrence: FR)
  Receive Date: 20200320
  Receipt Date: 20200320
  Transmission Date: 20200409
  Serious: Yes (Other)
  Sender: FDA-Public Use
  Company Number: FR-009507513-2003FRA005702

PATIENT
  Sex: Male

DRUGS (2)
  1. JANUMET [Suspect]
     Active Substance: METFORMIN HYDROCHLORIDE\SITAGLIPTIN PHOSPHATE
     Dosage: UNK
     Route: 048
     Dates: start: 2019
  2. VELMETIA [Suspect]
     Active Substance: METFORMIN\SITAGLIPTIN
     Indication: TYPE 2 DIABETES MELLITUS
     Dosage: 1 TABLET IN THE MORNING AND AT NIGHT
     Route: 048
     Dates: end: 2019

REACTIONS (5)
  - Product substitution issue [Unknown]
  - Product availability issue [Unknown]
  - Diabetes mellitus inadequate control [Unknown]
  - Glycosylated haemoglobin increased [Unknown]
  - Abdominal pain [Unknown]

NARRATIVE: CASE EVENT DATE: 2019
